FAERS Safety Report 8862533 (Version 1)
Quarter: 2012Q4

REPORT INFORMATION
  Report Type: 
  Country: FR (occurrence: FR)
  Receive Date: 20121026
  Receipt Date: 20121026
  Transmission Date: 20130627
  Serious: Yes (Other)
  Sender: FDA-Public Use
  Company Number: FR-PFIZER INC-2012264625

PATIENT
  Age: 51 Year
  Sex: Female

DRUGS (3)
  1. FARMORUBICIN [Suspect]
     Indication: BREAST CANCER
     Dosage: 160 mg, cyclic
     Route: 042
     Dates: start: 20120723
  2. FLUOROURACIL [Suspect]
     Indication: BREAST CANCER
     Dosage: 800 mg, cyclic
     Route: 042
     Dates: start: 20120723
  3. ENDOXAN [Suspect]
     Indication: BREAST CANCER
     Dosage: 800 mg, cyclic
     Route: 042
     Dates: start: 20120723

REACTIONS (7)
  - Inflammation [Recovering/Resolving]
  - Nail discolouration [Recovering/Resolving]
  - Onycholysis [Recovering/Resolving]
  - Onychomadesis [Recovering/Resolving]
  - Onychalgia [Recovering/Resolving]
  - Splinter haemorrhages [Recovering/Resolving]
  - Nail bed infection [Recovering/Resolving]
